FAERS Safety Report 25734493 (Version 1)
Quarter: 2025Q3

REPORT INFORMATION
  Report Type: Report from Study
  Country: US (occurrence: US)
  Receive Date: 20250828
  Receipt Date: 20250828
  Transmission Date: 20251021
  Serious: Yes (Other)
  Sender: ABBVIE
  Company Number: US-ABBVIE-6320040

PATIENT
  Age: 68 Year
  Sex: Female

DRUGS (1)
  1. SKYRIZI [Suspect]
     Active Substance: RISANKIZUMAB-RZAA
     Indication: Psoriasis
     Route: 058
     Dates: start: 20230323

REACTIONS (4)
  - Knee deformity [Recovering/Resolving]
  - Pain [Recovering/Resolving]
  - Back pain [Not Recovered/Not Resolved]
  - Fall [Recovering/Resolving]

NARRATIVE: CASE EVENT DATE: 20250401
